FAERS Safety Report 11051091 (Version 1)
Quarter: 2015Q2

REPORT INFORMATION
  Report Type: Spontaneous
  Country: IL (occurrence: IL)
  Receive Date: 20150421
  Receipt Date: 20150421
  Transmission Date: 20150821
  Serious: Yes (Other)
  Sender: FDA-Public Use
  Company Number: IL-SA-2015SA048789

PATIENT
  Sex: Female

DRUGS (1)
  1. LEMTRADA [Suspect]
     Active Substance: ALEMTUZUMAB
     Indication: MULTIPLE SCLEROSIS
     Route: 042
     Dates: start: 2015

REACTIONS (2)
  - White blood cell count decreased [Not Recovered/Not Resolved]
  - Lymphocyte count [Not Recovered/Not Resolved]

NARRATIVE: CASE EVENT DATE: 20150414
